FAERS Safety Report 25496090 (Version 1)
Quarter: 2025Q2

REPORT INFORMATION
  Report Type: Spontaneous
  Country: GR (occurrence: GR)
  Receive Date: 20250630
  Receipt Date: 20250630
  Transmission Date: 20250717
  Serious: Yes (Hospitalization, Other)
  Sender: PFIZER
  Company Number: GR-PFIZER INC-PV202500076219

PATIENT
  Age: 73 Year
  Sex: Male

DRUGS (8)
  1. SPIRONOLACTONE [Suspect]
     Active Substance: SPIRONOLACTONE
     Indication: Chronic kidney disease
  2. BISOPROLOL [Suspect]
     Active Substance: BISOPROLOL
     Indication: Chronic kidney disease
  3. RAMIPRIL [Suspect]
     Active Substance: RAMIPRIL
  4. ALLOPURINOL [Suspect]
     Active Substance: ALLOPURINOL
     Indication: Chronic kidney disease
  5. FUROSEMIDE [Suspect]
     Active Substance: FUROSEMIDE
     Indication: Chronic kidney disease
  6. FUROSEMIDE [Suspect]
     Active Substance: FUROSEMIDE
     Route: 042
  7. ATORVASTATIN [Suspect]
     Active Substance: ATORVASTATIN
     Indication: Chronic kidney disease
  8. TAMSULOSIN [Suspect]
     Active Substance: TAMSULOSIN
     Indication: Chronic kidney disease

REACTIONS (3)
  - Renal impairment [Unknown]
  - Sepsis [Unknown]
  - Cardiac failure [Unknown]
